FAERS Safety Report 24652341 (Version 1)
Quarter: 2024Q4

REPORT INFORMATION
  Report Type: Spontaneous
  Country: CH (occurrence: CH)
  Receive Date: 20241122
  Receipt Date: 20241122
  Transmission Date: 20250114
  Serious: Yes (Other)
  Sender: BRISTOL-MYERS SQUIBB COMPANY
  Company Number: None

PATIENT
  Age: 77 Year
  Sex: Female
  Weight: 64 kg

DRUGS (3)
  1. OPDIVO [Suspect]
     Active Substance: NIVOLUMAB
     Indication: Gastrointestinal adenocarcinoma
     Dosage: 240 MG CHAQUE 2 SEMAINES
     Route: 040
     Dates: start: 20211021, end: 20231218
  2. FLUOROURACIL [Suspect]
     Active Substance: FLUOROURACIL
     Indication: Gastrointestinal adenocarcinoma
     Dosage: ACCORDING TO FOLFOX PROTOCOL UP TO 4.4.2022, THEN MAINTENANCE
     Route: 040
     Dates: start: 20211021, end: 20231218
  3. FLUOROURACIL\LEUCOVORIN CALCIUM\OXALIPLATIN [Suspect]
     Active Substance: FLUOROURACIL\LEUCOVORIN CALCIUM\OXALIPLATIN
     Indication: Gastrointestinal adenocarcinoma
     Dates: start: 20211021, end: 20220404

REACTIONS (2)
  - Morphoea [Not Recovered/Not Resolved]
  - Eosinophilic fasciitis [Unknown]

NARRATIVE: CASE EVENT DATE: 20231218
